FAERS Safety Report 21621626 (Version 1)
Quarter: 2022Q4

REPORT INFORMATION
  Report Type: Spontaneous
  Country: US (occurrence: None)
  Receive Date: 20221120
  Receipt Date: 20221120
  Transmission Date: 20230113
  Serious: Yes (Other)
  Sender: FDA-Public Use
  Company Number: None

PATIENT
  Age: 31 Year
  Sex: Female
  Weight: 56.25 kg

DRUGS (1)
  1. HERBALS\MITRAGYNINE [Suspect]
     Active Substance: HERBALS\MITRAGYNINE
     Dates: start: 20210814, end: 20221120

REACTIONS (4)
  - Mental disorder [None]
  - Agitation [None]
  - General physical condition abnormal [None]
  - Quality of life decreased [None]

NARRATIVE: CASE EVENT DATE: 20210814
